FAERS Safety Report 9625095 (Version 1)
Quarter: 2013Q4

REPORT INFORMATION
  Report Type: Spontaneous
  Country: US (occurrence: None)
  Receive Date: 20131015
  Receipt Date: 20131015
  Transmission Date: 20140711
  Serious: Yes (Death, Hospitalization)
  Sender: FDA-Public Use
  Company Number: None

PATIENT
  Age: 73 Year
  Sex: Male
  Weight: 70.6 kg

DRUGS (1)
  1. RIVAROXABAN [Suspect]
     Indication: ATRIAL FLUTTER
     Route: 048

REACTIONS (3)
  - Syncope [None]
  - Rib fracture [None]
  - Cardiac arrest [None]
